FAERS Safety Report 4945813-2 (Version None)
Quarter: 2006Q1

REPORT INFORMATION
  Report Type: 
  Country: None (occurrence: None)
  Receive Date: 20060316
  Receipt Date: 20040802
  Transmission Date: 20060701
  Serious: Yes (Life-Threatening, Hospitalization, Other)
  Sender: FDA-Public Use
  Company Number: PHHO2004JP10922

PATIENT
  Age: 85 Year
  Sex: Female

DRUGS (14)
  1. AMLODIN [Concomitant]
     Indication: HYPERTENSION
     Dosage: 5MG DAILY
     Route: 048
     Dates: start: 20000112, end: 20040830
  2. FLUITRAN [Suspect]
     Indication: HYPERTENSION
     Dosage: 2MG DAILY
     Route: 048
     Dates: start: 20031201, end: 20041027
  3. ALDACTONE [Suspect]
     Indication: HYPERTENSION
     Dosage: 25MG DAILY
     Route: 048
     Dates: start: 20031201, end: 20040706
  4. ALDACTONE [Suspect]
     Dosage: 12.5MG DAILY
     Route: 048
     Dates: start: 20040707, end: 20040830
  5. ALDACTONE [Suspect]
     Dosage: 25MG DAILY
     Route: 048
     Dates: start: 20040831, end: 20041027
  6. ALLOPURINOL [Concomitant]
     Indication: HYPERURICAEMIA
     Dosage: 100MG DAILY
     Route: 048
     Dates: start: 20031201, end: 20041027
  7. BASEN [Concomitant]
     Indication: DIABETES MELLITUS
     Dosage: 0.6MG DAILY
     Route: 048
     Dates: start: 20040519, end: 20041027
  8. PANALDINE [Concomitant]
     Indication: CEREBRAL INFARCTION
     Dosage: 300MG DAILY
     Route: 048
     Dates: start: 19941214, end: 20041027
  9. LASIX [Suspect]
     Indication: HYPERTENSION
     Dosage: 80 MG
     Route: 048
     Dates: start: 20040203, end: 20040830
  10. LASIX [Suspect]
     Dosage: 90MG DAILY
     Route: 048
     Dates: start: 20040831, end: 20041027
  11. DIOVAN [Suspect]
     Indication: HYPERTENSION
     Dosage: 80 MG, QD
     Route: 048
     Dates: start: 20030515, end: 20040120
  12. DIOVAN [Suspect]
     Dosage: 160 MG, QD
     Route: 048
     Dates: start: 20040121, end: 20040706
  13. DIOVAN [Suspect]
     Dosage: 80MG DAILY
     Route: 048
     Dates: start: 20040707, end: 20040830
  14. DIOVAN [Suspect]
     Dosage: 40MG DAILY
     Route: 048
     Dates: start: 20040831, end: 20041027

REACTIONS (10)
  - ANAEMIA [None]
  - ANOREXIA [None]
  - BLOOD CREATININE INCREASED [None]
  - BLOOD POTASSIUM INCREASED [None]
  - CARDIAC FAILURE [None]
  - DEHYDRATION [None]
  - DYSPNOEA [None]
  - PNEUMONIA PRIMARY ATYPICAL [None]
  - PYREXIA [None]
  - RENAL IMPAIRMENT [None]
